FAERS Safety Report 24710959 (Version 1)
Quarter: 2024Q4

REPORT INFORMATION
  Report Type: Spontaneous
  Country: US (occurrence: None)
  Receive Date: 20241206
  Receipt Date: 20241206
  Transmission Date: 20250114
  Serious: Yes (Hospitalization)
  Sender: Public
  Company Number: None

PATIENT
  Age: 75 Year
  Sex: Female

DRUGS (1)
  1. ENBREL [Suspect]
     Active Substance: ETANERCEPT
     Indication: Rheumatoid arthritis
     Dosage: 1 ML ONCE WEEKLY SUBCUTANEOUS
     Route: 058

REACTIONS (3)
  - Urinary tract infection [None]
  - Kidney infection [None]
  - Haematological infection [None]

NARRATIVE: CASE EVENT DATE: 20241118
